FAERS Safety Report 6629561-9 (Version None)
Quarter: 2010Q1

REPORT INFORMATION
  Report Type: 
  Country: None (occurrence: None)
  Receive Date: 20100311
  Receipt Date: 20100226
  Transmission Date: 20100710
  Serious: Yes (Other)
  Sender: FDA-Public Use
  Company Number: FR-ELI_LILLY_AND_COMPANY-FR201001004503

PATIENT
  Age: 81 Year
  Sex: Male
  Weight: 65 kg

DRUGS (6)
  1. FORTEO [Suspect]
     Indication: OSTEOPOROSIS
     Dosage: 20 UG, DAILY (1/D)
     Route: 058
     Dates: start: 20090619
  2. RIVOTRIL [Concomitant]
     Dosage: UNK, UNKNOWN
     Route: 065
  3. STILNOX [Concomitant]
     Dosage: UNK, UNKNOWN
     Route: 065
  4. LAROXYL [Concomitant]
     Dosage: UNK, UNKNOWN
     Route: 065
  5. EUPRESSYL [Concomitant]
     Dosage: UNK, UNKNOWN
     Route: 065
  6. TEMERIT                            /01339101/ [Concomitant]
     Dosage: UNK, UNKNOWN
     Route: 065

REACTIONS (1)
  - MALIGNANT MELANOMA [None]
